FAERS Safety Report 24314139 (Version 1)
Quarter: 2024Q3

REPORT INFORMATION
  Report Type: Report from Study
  Country: US (occurrence: US)
  Receive Date: 20240912
  Receipt Date: 20240912
  Transmission Date: 20241017
  Serious: Yes (Hospitalization, Other)
  Sender: HLS THERAPEUTICS
  Company Number: US-HLS-202401153

PATIENT

DRUGS (1)
  1. CLOZAPINE [Suspect]
     Active Substance: CLOZAPINE
     Indication: Schizophrenia
     Dosage: 200MG IN THE MORNING 250MG AT BEDTIME
     Route: 065

REACTIONS (3)
  - Suicide attempt [Unknown]
  - Injury [Unknown]
  - Schizophrenia [Unknown]
